FAERS Safety Report 8207820 (Version 2)
Quarter: 2016Q4

REPORT INFORMATION
  Report Type: Spontaneous
  Country: US (occurrence: US)
  Receive Date: 20111028
  Receipt Date: 20161108
  Transmission Date: 20170207
  Serious: No
  Sender: FDA-Public Use
  Company Number: US-GLAXOSMITHKLINE-A0937075A

PATIENT
  Age: 64 Year
  Sex: Male

DRUGS (13)
  1. ADVAIR DISKUS [Suspect]
     Active Substance: FLUTICASONE PROPIONATE\SALMETEROL XINAFOATE
     Indication: PRODUCT USED FOR UNKNOWN INDICATION
     Dosage: 250/50
     Route: 055
     Dates: start: 2009
  2. OXYCODONE [Suspect]
     Active Substance: OXYCODONE
     Indication: PAIN
     Dosage: UNK
  3. VITAMIN C [Concomitant]
     Active Substance: ASCORBIC ACID
  4. MULTIVITAMIN [Concomitant]
     Active Substance: VITAMINS
  5. PROBIOTICS [Concomitant]
     Active Substance: PROBIOTICS NOS
  6. AVAPRO [Concomitant]
     Active Substance: IRBESARTAN
  7. ANDROGEL [Suspect]
     Active Substance: TESTOSTERONE
     Indication: ANDROGEN DEFICIENCY
     Dosage: UNK
  8. ATIVAN [Concomitant]
     Active Substance: LORAZEPAM
  9. CALCIUM [Concomitant]
     Active Substance: CALCIUM
  10. ADVAIR DISKUS [Suspect]
     Active Substance: FLUTICASONE PROPIONATE\SALMETEROL XINAFOATE
     Dosage: 1 PUFF(S), QD
     Route: 055
  11. VITAMIN D [Concomitant]
     Active Substance: CHOLECALCIFEROL
  12. NASACORT AQ [Suspect]
     Active Substance: TRIAMCINOLONE ACETONIDE
     Indication: MULTIPLE ALLERGIES
     Route: 045
     Dates: start: 2009
  13. ATROVENT [Concomitant]
     Active Substance: IPRATROPIUM BROMIDE

REACTIONS (8)
  - Gingival recession [Unknown]
  - Expired product administered [Unknown]
  - Gingivitis [Unknown]
  - Toothache [Unknown]
  - Dental caries [Unknown]
  - Blood pressure increased [Unknown]
  - Underdose [Unknown]
  - Tooth loss [Unknown]

NARRATIVE: CASE EVENT DATE: 201105
